FAERS Safety Report 4942673-0 (Version None)
Quarter: 2006Q1

REPORT INFORMATION
  Report Type: 
  Country: None (occurrence: None)
  Receive Date: 20060303
  Receipt Date: 20060217
  Transmission Date: 20060701
  Serious: Yes (Hospitalization)
  Sender: FDA-Public Use
  Company Number: 2006BH002044

PATIENT
  Age: 57 Year
  Sex: Female
  Weight: 44.5 kg

DRUGS (6)
  1. BUMINATE 5% (ALBUMIN HUMAN) [Suspect]
     Indication: ASCITES
     Dosage: SEE IMAGE
     Route: 041
     Dates: start: 20060110
  2. BUMINATE 5% (ALBUMIN HUMAN) [Suspect]
     Indication: ASCITES
     Dosage: SEE IMAGE
     Route: 041
     Dates: start: 20060112
  3. BUMINATE 5% (ALBUMIN HUMAN) [Suspect]
     Indication: ASCITES
     Dosage: SEE IMAGE
     Route: 041
     Dates: start: 20060114
  4. BUMINATE 5% (ALBUMIN HUMAN) [Suspect]
     Indication: ASCITES
     Dosage: SEE IMAGE
     Route: 041
     Dates: start: 20060118
  5. BUMINATE 5% (ALBUMIN HUMAN) [Suspect]
     Indication: ASCITES
     Dosage: SEE IMAGE
     Route: 041
     Dates: start: 20060125
  6. HEMODIALYSIS [Concomitant]

REACTIONS (5)
  - EXFOLIATIVE RASH [None]
  - FEELING HOT [None]
  - INFUSION RELATED REACTION [None]
  - PRURITUS [None]
  - RASH GENERALISED [None]
